FAERS Safety Report 9151860 (Version 1)
Quarter: 2013Q1

REPORT INFORMATION
  Report Type: Report from Study
  Country: FI (occurrence: FI)
  Receive Date: 20130308
  Receipt Date: 20130308
  Transmission Date: 20140127
  Serious: Yes (Death)
  Sender: FDA-Public Use
  Company Number: FI-BAYER-2013-026328

PATIENT
  Age: 80 Year
  Sex: Male

DRUGS (2)
  1. ACETYLSALICYLIC ACID({=100 MG) [Suspect]
     Dosage: 81 MG ASA + CLOPIDOGREL NOS
  2. CLOPIDOGREL [Suspect]

REACTIONS (1)
  - Haemothorax [Fatal]
